FAERS Safety Report 5518391-7 (Version None)
Quarter: 2007Q4

REPORT INFORMATION
  Report Type: 
  Country: None (occurrence: None)
  Receive Date: 20071115
  Receipt Date: 20071106
  Transmission Date: 20080405
  Serious: Yes (Other)
  Sender: FDA-Public Use
  Company Number: US-MERCK-0710USA06222

PATIENT
  Age: 21 Year
  Sex: Female
  Weight: 50 kg

DRUGS (2)
  1. MAXALT [Suspect]
     Indication: MIGRAINE
     Route: 048
     Dates: start: 20071012, end: 20071012
  2. TYLENOL [Concomitant]
     Indication: MIGRAINE
     Route: 048
     Dates: start: 20071011, end: 20071012

REACTIONS (5)
  - ADVERSE EVENT [None]
  - HEADACHE [None]
  - HEART RATE INCREASED [None]
  - TENSION [None]
  - TRISMUS [None]
